FAERS Safety Report 14609991 (Version 1)
Quarter: 2018Q1

REPORT INFORMATION
  Report Type: Spontaneous
  Country: US (occurrence: US)
  Receive Date: 20180307
  Receipt Date: 20180307
  Transmission Date: 20180509
  Serious: Yes (Other)
  Sender: FDA-Public Use
  Company Number: None

PATIENT
  Age: 62 Year
  Sex: Female

DRUGS (1)
  1. ETODOLAC 400MG TEVA [Suspect]
     Active Substance: ETODOLAC
     Indication: OSTEOARTHRITIS
     Route: 048
     Dates: start: 2009

REACTIONS (2)
  - Bilirubinuria [None]
  - False positive investigation result [None]

NARRATIVE: CASE EVENT DATE: 20180121
